FAERS Safety Report 7182915-7 (Version None)
Quarter: 2010Q4

REPORT INFORMATION
  Report Type: 
  Country: None (occurrence: None)
  Receive Date: 20101209
  Receipt Date: 20101124
  Transmission Date: 20110411
  Serious: Yes (Hospitalization, Other)
  Sender: FDA-Public Use
  Company Number: TCI2010A05484

PATIENT
  Age: 83 Year
  Sex: Female

DRUGS (8)
  1. LANSOPRAZOLE [Suspect]
     Dosage: PER ORAL
     Route: 048
  2. MELOXICAM [Concomitant]
  3. CEREGASRON (IRSOGLADINE MALEATE) [Concomitant]
  4. DIOVAN [Concomitant]
  5. AMLODIPINE BESYLATE [Concomitant]
  6. FOSMICIN (FOSFOMYCIN CALCIUM) [Concomitant]
  7. ENTERONON R (STREPTOCOCCUS LACTIS, BIFIDOBACTERIUM BIFIDUS, LACTOBACIL [Concomitant]
  8. HANGESHASHINTO (HERBAL PREPARATION) [Concomitant]

REACTIONS (7)
  - COLITIS COLLAGENOUS [None]
  - COLITIS ISCHAEMIC [None]
  - COLON CANCER [None]
  - DECREASED APPETITE [None]
  - DIARRHOEA [None]
  - IRRITABLE BOWEL SYNDROME [None]
  - LARGE INTESTINAL ULCER [None]
